FAERS Safety Report 19763224 (Version 1)
Quarter: 2021Q3

REPORT INFORMATION
  Report Type: Spontaneous
  Country: US (occurrence: US)
  Receive Date: 20210830
  Receipt Date: 20210830
  Transmission Date: 20211014
  Serious: Yes (Other)
  Sender: FDA-Public Use
  Company Number: US-SA-2021SA280413

PATIENT
  Age: 34 Year
  Sex: Female

DRUGS (3)
  1. DIPHENHYDRAMINE. [Concomitant]
     Active Substance: DIPHENHYDRAMINE
     Indication: DERMATITIS ATOPIC
     Dosage: 25 MG, QID DAILY (AS NEEDED)
  2. DUPILUMAB [Suspect]
     Active Substance: DUPILUMAB
     Indication: DERMATITIS ATOPIC
     Dosage: UNK
  3. BETAMETHASONE. [Concomitant]
     Active Substance: BETAMETHASONE
     Indication: DERMATITIS ATOPIC
     Dosage: UNK UNK, PRN
     Route: 061

REACTIONS (12)
  - Pleocytosis [Recovering/Resolving]
  - Decreased vibratory sense [Recovering/Resolving]
  - Condition aggravated [Recovering/Resolving]
  - Abdominal discomfort [Recovering/Resolving]
  - Micturition urgency [Recovering/Resolving]
  - Paraesthesia [Recovering/Resolving]
  - Myelopathy [Recovering/Resolving]
  - Hyperreflexia [Recovering/Resolving]
  - Multiple sclerosis [Recovering/Resolving]
  - Areflexia [Recovering/Resolving]
  - Relapsing-remitting multiple sclerosis [Recovering/Resolving]
  - Muscular weakness [Recovering/Resolving]
